FAERS Safety Report 15172509 (Version 1)
Quarter: 2018Q3

REPORT INFORMATION
  Report Type: Spontaneous
  Country: CA (occurrence: CA)
  Receive Date: 20180720
  Receipt Date: 20180720
  Transmission Date: 20181010
  Serious: Yes (Death)
  Sender: FDA-Public Use
  Company Number: CA-PFIZER INC-2017130049

PATIENT
  Age: 36 Year
  Sex: Female

DRUGS (5)
  1. IBRANCE [Suspect]
     Active Substance: PALBOCICLIB
     Dosage: 125 MG, CYCLIC (DAILY FOR 21 DAYS AND 7 DAYS OFF)
     Route: 048
     Dates: start: 20170110
  2. CLARITIN /00984601/ [Concomitant]
     Dosage: UNK, (24 HOURS)
  3. HYDROMORPHONE [Concomitant]
     Active Substance: HYDROMORPHONE
     Dosage: 1 MG, UNK
  4. IBRANCE [Suspect]
     Active Substance: PALBOCICLIB
     Dosage: 1 DF, CYCLIC, (DAILY, 21 DAYS ON, 7 DAYS OFF)
     Route: 048
     Dates: start: 201702
  5. LETROZOLE. [Suspect]
     Active Substance: LETROZOLE
     Dosage: UNK

REACTIONS (10)
  - Visual impairment [Unknown]
  - Headache [Unknown]
  - Tremor [Unknown]
  - Aphasia [Unknown]
  - Blood pressure increased [Unknown]
  - Heart rate increased [Unknown]
  - Ear discomfort [Unknown]
  - Balance disorder [Unknown]
  - Death [Fatal]
  - Limb discomfort [Unknown]
